FAERS Safety Report 10063603 (Version 1)
Quarter: 2014Q2

REPORT INFORMATION
  Report Type: Spontaneous
  Country: IT (occurrence: IT)
  Receive Date: 20140407
  Receipt Date: 20140407
  Transmission Date: 20141212
  Serious: Yes (Other)
  Sender: FDA-Public Use
  Company Number: IT-BAXTER-2014BAX017295

PATIENT
  Age: 14 Year
  Sex: Male

DRUGS (3)
  1. ENDOXAN BAXTER [Suspect]
     Indication: CHEMOTHERAPY
     Route: 065
  2. BUSULFAN [Suspect]
     Indication: CHEMOTHERAPY
     Route: 065
  3. MELPHALAN [Suspect]
     Indication: CHEMOTHERAPY
     Route: 065

REACTIONS (5)
  - Hypertension [Unknown]
  - Tooth loss [Unknown]
  - Tooth impacted [Unknown]
  - Tooth hypoplasia [Unknown]
  - Tooth malformation [Unknown]
